FAERS Safety Report 9324693 (Version 1)
Quarter: 2013Q2

REPORT INFORMATION
  Report Type: Spontaneous
  Country: JP (occurrence: JP)
  Receive Date: 20130603
  Receipt Date: 20130603
  Transmission Date: 20140414
  Serious: Yes (Other)
  Sender: FDA-Public Use
  Company Number: JP-GLAXOSMITHKLINE-B0894928A

PATIENT
  Sex: 0

DRUGS (1)
  1. REVOLADE [Suspect]
     Indication: PRODUCT USED FOR UNKNOWN INDICATION
     Route: 048

REACTIONS (4)
  - Pancreatitis acute [Not Recovered/Not Resolved]
  - Ascites [Not Recovered/Not Resolved]
  - Amylase increased [Not Recovered/Not Resolved]
  - Urine output decreased [Not Recovered/Not Resolved]
